FAERS Safety Report 17976462 (Version 1)
Quarter: 2020Q3

REPORT INFORMATION
  Report Type: Spontaneous
  Country: DE (occurrence: DE)
  Receive Date: 20200703
  Receipt Date: 20200703
  Transmission Date: 20201103
  Serious: Yes (Hospitalization, Other)
  Sender: FDA-Public Use
  Company Number: DE-TEVA-2020-DE-1793961

PATIENT
  Age: 20 Year
  Sex: Female

DRUGS (2)
  1. METAMIZOL [Suspect]
     Active Substance: METAMIZOLE SODIUM
     Indication: PERITONSILLAR ABSCESS
     Dosage: 4 X 1,5 G, 6 GRAM
     Route: 048
     Dates: start: 20200529, end: 20200604
  2. PENICILLIN [Suspect]
     Active Substance: PENICILLIN
     Indication: TONSILLITIS
     Dosage: UNKNOWN
     Route: 048
     Dates: start: 20200528, end: 20200604

REACTIONS (1)
  - Agranulocytosis [Recovered/Resolved]

NARRATIVE: CASE EVENT DATE: 20200604
